FAERS Safety Report 4412652-0 (Version None)
Quarter: 2004Q2

REPORT INFORMATION
  Report Type: 
  Country: None (occurrence: None)
  Receive Date: 20040630
  Receipt Date: 20040312
  Transmission Date: 20050107
  Serious: No
  Sender: FDA-Public Use
  Company Number: 04P-163-0253287-00

PATIENT
  Age: 36 Year
  Sex: Male
  Weight: 88.4514 kg

DRUGS (6)
  1. HUMIRA [Suspect]
     Indication: ANKYLOSING SPONDYLITIS
     Dosage: 40 MG, 1 IN 2 WK, SUBCUTANEOUS
     Route: 058
     Dates: start: 20040311
  2. PREDNISONE [Concomitant]
  3. FOLIC ACID [Concomitant]
  4. ROFECOXIB [Concomitant]
  5. TYLENOL #3 (GALENIC / PARACETAMOL/CODEINE/) [Concomitant]
  6. CYCLOBENZAPRINE HYDROCHLORIDE [Concomitant]

REACTIONS (1)
  - INJECTION SITE BURNING [None]
